FAERS Safety Report 18073703 (Version 10)
Quarter: 2025Q4

REPORT INFORMATION
  Report Type: Report from Study
  Country: EU (occurrence: EU)
  Receive Date: 20200727
  Receipt Date: 20251113
  Transmission Date: 20260117
  Serious: No
  Sender: TAKEDA
  Company Number: EU-SHIRE-FR201850797

PATIENT
  Age: 54 Year
  Sex: Male

DRUGS (28)
  1. TEDUGLUTIDE [Suspect]
     Active Substance: TEDUGLUTIDE
     Indication: Short-bowel syndrome
     Dosage: 3.3 MILLIGRAM, QD
     Dates: start: 20160317, end: 20181016
  2. TEDUGLUTIDE [Suspect]
     Active Substance: TEDUGLUTIDE
  3. TEDUGLUTIDE [Suspect]
     Active Substance: TEDUGLUTIDE
  4. TEDUGLUTIDE [Suspect]
     Active Substance: TEDUGLUTIDE
  5. ESOMEPRAZOLE [Concomitant]
     Active Substance: ESOMEPRAZOLE
     Indication: Short-bowel syndrome
     Dosage: 40 MILLIGRAM, QD
     Dates: start: 201701
  6. ESOMEPRAZOLE [Concomitant]
     Active Substance: ESOMEPRAZOLE
     Indication: Gastric ulcer
     Dosage: 2 MILLIGRAM, BID
     Dates: start: 202101, end: 202102
  7. CHOLECALCIFEROL [Concomitant]
     Active Substance: CHOLECALCIFEROL
     Indication: Vitamin supplementation
     Dosage: UNK UNK, 1/WEEK
     Dates: start: 201701, end: 2018
  8. CREON [Concomitant]
     Active Substance: PANCRELIPASE AMYLASE\PANCRELIPASE LIPASE\PANCRELIPASE PROTEASE
     Indication: Short-bowel syndrome
     Dosage: 25000 INTERNATIONAL UNIT, TID
     Dates: start: 201703, end: 201808
  9. NORFLOXACIN [Concomitant]
     Active Substance: NORFLOXACIN
     Indication: Gastrointestinal microorganism overgrowth
     Dosage: UNK
  10. NORFLOXACIN [Concomitant]
     Active Substance: NORFLOXACIN
     Dosage: 800 MILLIGRAM
  11. FLAGYL [Concomitant]
     Active Substance: METRONIDAZOLE\METRONIDAZOLE HYDROCHLORIDE
     Indication: Gastrointestinal microorganism overgrowth
     Dosage: 250 MILLIGRAM
  12. CHOLECALCIFEROL [Concomitant]
     Active Substance: CHOLECALCIFEROL
     Indication: Osteopenia
     Dosage: 80000.00 INTERNATIONAL UNIT, QD
     Dates: start: 201804, end: 2018
  13. VITAMIN B12 [Concomitant]
     Active Substance: CYANOCOBALAMIN
     Indication: Prophylaxis
     Dosage: 1 MILLIGRAM, QD
     Dates: start: 201804
  14. VITAMIN B12 [Concomitant]
     Active Substance: CYANOCOBALAMIN
     Dosage: UNK UNK, MONTHLY
     Dates: start: 2019
  15. URSODIOL [Concomitant]
     Active Substance: URSODIOL
     Indication: Prophylaxis
     Dosage: 500 MILLIGRAM, TID
     Dates: start: 201804, end: 2018
  16. CHOLECALCIFEROL [Concomitant]
     Active Substance: CHOLECALCIFEROL
     Indication: Prophylaxis
     Dosage: 80000 INTERNATIONAL UNIT, 1/WEEK
     Dates: start: 201804
  17. RACECADOTRIL [Concomitant]
     Active Substance: RACECADOTRIL
     Indication: Prophylaxis
     Dosage: UNK
  18. VITAMIN A [Concomitant]
     Active Substance: VITAMIN A
     Indication: Vitamin supplementation
     Dosage: 100000 INTERNATIONAL UNIT, MONTHLY
  19. PANCRELIPASE [Concomitant]
     Active Substance: PANCRELIPASE
     Indication: Prophylaxis
     Dosage: 25000 INTERNATIONAL UNIT
  20. URSODIOL [Concomitant]
     Active Substance: URSODIOL
     Indication: Prophylaxis
     Dosage: 500 MILLIGRAM, TID
     Dates: start: 201810, end: 202101
  21. VITAMIN D [Concomitant]
     Active Substance: VITAMIN D NOS
     Indication: Prophylaxis
     Dosage: 100000 INTERNATIONAL UNIT
  22. LANSOPRAZOLE [Concomitant]
     Active Substance: LANSOPRAZOLE
     Indication: Prophylaxis
     Dosage: 30 MILLIGRAM, QD
  23. LOPERAMIDE [Concomitant]
     Active Substance: LOPERAMIDE
     Indication: Short-bowel syndrome
     Dosage: 2 MILLIGRAM
  24. FAMOTIDINE [Concomitant]
     Active Substance: FAMOTIDINE
     Indication: Gastric ulcer
     Dosage: 20 MILLIGRAM, QD
     Dates: start: 202104
  25. VITAMIN E [Concomitant]
     Active Substance: .ALPHA.-TOCOPHEROL
     Indication: Vitamin supplementation
     Dosage: 100 MILLIGRAM, MONTHLY
     Dates: start: 202104
  26. VITAMIN C [Concomitant]
     Active Substance: ASCORBIC ACID
     Indication: Vitamin supplementation
     Dosage: UNK UNK, QD
     Dates: start: 202104, end: 202105
  27. LEVOCARNITINE [Concomitant]
     Active Substance: LEVOCARNITINE
     Indication: Vitamin supplementation
     Dosage: 1 GRAM, TID
     Dates: start: 202104, end: 202105
  28. LEVOCARNITINE [Concomitant]
     Active Substance: LEVOCARNITINE
     Dosage: UNK

REACTIONS (1)
  - Pseudopolyp [Recovered/Resolved]

NARRATIVE: CASE EVENT DATE: 20180409
